FAERS Safety Report 5648594-2 (Version None)
Quarter: 2008Q1

REPORT INFORMATION
  Report Type: 
  Country: None (occurrence: None)
  Receive Date: 20080303
  Receipt Date: 20080303
  Transmission Date: 20080703
  Serious: No
  Sender: FDA-Public Use
  Company Number: None

PATIENT
  Age: 77 Year
  Sex: Female

DRUGS (1)
  1. LEVAQUIN [Suspect]
     Dosage: 500MG QDAY INTRAVESICA
     Route: 043
     Dates: start: 19940219, end: 20080220

REACTIONS (2)
  - CATHETER SITE ERYTHEMA [None]
  - VEIN DISCOLOURATION [None]
